FAERS Safety Report 5545304-4 (Version None)
Quarter: 2007Q4

REPORT INFORMATION
  Report Type: 
  Country: None (occurrence: None)
  Receive Date: 20071211
  Receipt Date: 20071203
  Transmission Date: 20080405
  Serious: Yes (Hospitalization)
  Sender: FDA-Public Use
  Company Number: PHNU2007DE04024

PATIENT
  Sex: Female

DRUGS (2)
  1. LIORESAL [Suspect]
     Dosage: 250 MG, ONCE/SINGLE
     Route: 048
     Dates: start: 20071202, end: 20071202
  2. LIORESAL [Suspect]
     Dosage: 125 MG, QD
     Route: 048

REACTIONS (2)
  - ACCIDENTAL OVERDOSE [None]
  - APNOEA [None]
